FAERS Safety Report 8121280-5 (Version None)
Quarter: 2012Q1

REPORT INFORMATION
  Report Type: 
  Country: None (occurrence: None)
  Receive Date: 20120206
  Receipt Date: 20120124
  Transmission Date: 20120608
  Serious: Yes (Hospitalization)
  Sender: FDA-Public Use
  Company Number: DSU-2012-00582

PATIENT
  Age: 82 Year
  Sex: Female
  Weight: 85.7298 kg

DRUGS (6)
  1. GUAIFENESIN [Concomitant]
  2. LASIX [Concomitant]
  3. VENTOLIN INHALER (SALBUTAMOL) (INHALATION VAPOUR) (SALBUTAMOL) [Concomitant]
  4. BENICAR [Suspect]
     Indication: HYPERTENSION
     Dosage: 20 MG (20 MG, QD), PER ORAL
     Route: 048
  5. SINGULAIR (MONTELUKAST) (MONTELUKAST) [Concomitant]
  6. ADVAIR DISKUS 100/50 [Suspect]
     Indication: ASTHMA
     Dosage: PER ORAL
     Route: 048
     Dates: start: 20120123

REACTIONS (4)
  - BLOOD POTASSIUM INCREASED [None]
  - ASTHMA [None]
  - EXTRASYSTOLES [None]
  - BLOOD PRESSURE FLUCTUATION [None]
